FAERS Safety Report 9715665 (Version 1)
Quarter: 2013Q4

REPORT INFORMATION
  Report Type: Spontaneous
  Country: IT (occurrence: IT)
  Receive Date: 20131127
  Receipt Date: 20131127
  Transmission Date: 20140711
  Serious: Yes (Other)
  Sender: FDA-Public Use
  Company Number: IT-ACCORD-020451

PATIENT
  Age: 65 Year
  Sex: Female

DRUGS (5)
  1. CARDIOASPIRIN [Concomitant]
  2. ALDACTONE [Concomitant]
  3. DILATREND [Concomitant]
  4. INSULIN [Concomitant]
  5. GEMCITABINE [Suspect]
     Indication: PANCREATIC CARCINOMA
     Dosage: PATIENT TOOK DRUG ON DAYS 1, 8, 15 EVERY 28 DAYS.
     Dates: start: 201003, end: 201009

REACTIONS (2)
  - Capillary leak syndrome [Recovered/Resolved]
  - Pulmonary hypertension [Recovered/Resolved]
